FAERS Safety Report 10065733 (Version 1)
Quarter: 2014Q2

REPORT INFORMATION
  Report Type: Spontaneous
  Country: US (occurrence: US)
  Receive Date: 20140408
  Receipt Date: 20140408
  Transmission Date: 20141212
  Serious: No
  Sender: FDA-Public Use
  Company Number: US-PFIZER INC-2014096915

PATIENT
  Sex: Female

DRUGS (3)
  1. DOXYCYCLINE HYCLATE [Suspect]
  2. MINOCYCLINE [Suspect]
  3. TETRACYCLINE HCL [Suspect]

REACTIONS (1)
  - Drug hypersensitivity [Unknown]
